FAERS Safety Report 13541785 (Version 1)
Quarter: 2017Q2

REPORT INFORMATION
  Report Type: Spontaneous
  Country: FR (occurrence: FR)
  Receive Date: 20170512
  Receipt Date: 20170512
  Transmission Date: 20170830
  Serious: Yes (Hospitalization)
  Sender: FDA-Public Use
  Company Number: FR-MYLANLABS-2017M1027920

PATIENT

DRUGS (5)
  1. GOMENOL [Concomitant]
     Active Substance: NIAOULI OIL
     Indication: NASAL POLYPS
     Dosage: UNK
  2. CELESTENE [Concomitant]
     Active Substance: BETAMETHASONE
     Indication: NASAL POLYPS
     Dosage: UNK
  3. RYTHMOL [Suspect]
     Active Substance: PROPAFENONE HYDROCHLORIDE
     Indication: TACHYCARDIA
     Dosage: UNK
     Dates: start: 20160210
  4. ALPRAZOLAM. [Concomitant]
     Active Substance: ALPRAZOLAM
     Indication: PRODUCT USED FOR UNKNOWN INDICATION
     Dosage: UNK, TID
     Dates: start: 201602
  5. NEBCINE [Concomitant]
     Active Substance: TOBRAMYCIN
     Indication: NASAL POLYPS
     Dosage: UNK

REACTIONS (3)
  - Tinnitus [Not Recovered/Not Resolved]
  - Headache [Not Recovered/Not Resolved]
  - Disturbance in attention [Unknown]
